FAERS Safety Report 22305325 (Version 2)
Quarter: 2023Q2

REPORT INFORMATION
  Report Type: Spontaneous
  Country: US (occurrence: US)
  Receive Date: 20230510
  Receipt Date: 20230512
  Transmission Date: 20230722
  Serious: No
  Sender: FDA-Public Use
  Company Number: US-PFIZER INC-202300185153

PATIENT
  Age: 60 Year
  Sex: Female
  Weight: 99.79 kg

DRUGS (1)
  1. NURTEC ODT [Suspect]
     Active Substance: RIMEGEPANT SULFATE
     Indication: Migraine
     Dosage: 75 MG, AS NEEDED
     Route: 048

REACTIONS (2)
  - Arthritis [Unknown]
  - Product blister packaging issue [Unknown]
